FAERS Safety Report 8196478-0 (Version None)
Quarter: 2012Q1

REPORT INFORMATION
  Report Type: 
  Country: None (occurrence: None)
  Receive Date: 20120309
  Receipt Date: 20120306
  Transmission Date: 20120608
  Serious: Yes (Disabling, Other)
  Sender: FDA-Public Use
  Company Number: US-PFIZER INC-2012059810

PATIENT
  Sex: Female

DRUGS (2)
  1. PREMARIN [Suspect]
     Dosage: UNK
  2. PREMARIN [Suspect]
     Dosage: UNK

REACTIONS (1)
  - ARTHROPATHY [None]
